FAERS Safety Report 4756429-5 (Version None)
Quarter: 2005Q3

REPORT INFORMATION
  Report Type: 
  Country: None (occurrence: None)
  Receive Date: 20050830
  Receipt Date: 20050622
  Transmission Date: 20060218
  Serious: No
  Sender: FDA-Public Use
  Company Number: US-GLAXOSMITHKLINE-A0563798A

PATIENT
  Age: 56 Year
  Sex: Male

DRUGS (5)
  1. WELLBUTRIN XL [Suspect]
     Dosage: 300MG PER DAY
     Route: 048
     Dates: start: 20050501
  2. PROVIGIL [Concomitant]
  3. COZAAR [Concomitant]
  4. NEURONTIN [Concomitant]
  5. NEXIUM [Concomitant]

REACTIONS (1)
  - BLOOD PRESSURE INCREASED [None]
